FAERS Safety Report 5715770-X (Version None)
Quarter: 2008Q2

REPORT INFORMATION
  Report Type: 
  Country: None (occurrence: None)
  Receive Date: 20080422
  Receipt Date: 20080407
  Transmission Date: 20081010
  Serious: Yes (Other)
  Sender: FDA-Public Use
  Company Number: 2008S1006047

PATIENT
  Sex: Male

DRUGS (2)
  1. NEBIVOLOL HCL [Suspect]
     Indication: CARDIAC FAILURE
     Dosage: 5 MG; DAILY; ORAL
     Route: 048
  2. VIAGRA [Suspect]
     Indication: DRUG USE FOR UNKNOWN INDICATION
     Dosage: 50 MG; DAILY; ORAL
     Route: 048

REACTIONS (4)
  - ALCOHOL INTERACTION [None]
  - DRUG INTERACTION [None]
  - LOSS OF CONSCIOUSNESS [None]
  - MALAISE [None]
